FAERS Safety Report 6005614-3 (Version None)
Quarter: 2008Q4

REPORT INFORMATION
  Report Type: 
  Country: None (occurrence: None)
  Receive Date: 20081216
  Receipt Date: 20081216
  Transmission Date: 20090506
  Serious: Yes (Other)
  Sender: FDA-Public Use
  Company Number: None

PATIENT
  Age: 34 Year
  Sex: Male
  Weight: 92.5338 kg

DRUGS (2)
  1. DOXYCYCLINE HYCLATE [Suspect]
     Indication: COUGH
     Dosage: 30 QTY TWO A DAY
     Dates: start: 20081115, end: 20081202
  2. DOXYCYCLINE HYCLATE [Suspect]
     Indication: MUCOSAL DISCOLOURATION
     Dosage: 30 QTY TWO A DAY
     Dates: start: 20081115, end: 20081202

REACTIONS (4)
  - BONE PAIN [None]
  - CHILLS [None]
  - HYPERHIDROSIS [None]
  - MALAISE [None]
